FAERS Safety Report 25449530 (Version 1)
Quarter: 2025Q2

REPORT INFORMATION
  Report Type: Spontaneous
  Country: US (occurrence: US)
  Receive Date: 20250618
  Receipt Date: 20250618
  Transmission Date: 20250717
  Serious: No
  Sender: ROCHE
  Company Number: US-ROCHE-10000309909

PATIENT
  Sex: Male

DRUGS (2)
  1. LUCENTIS [Suspect]
     Active Substance: RANIBIZUMAB
     Indication: Neovascular age-related macular degeneration
     Route: 050
     Dates: start: 20250428
  2. LUCENTIS [Suspect]
     Active Substance: RANIBIZUMAB

REACTIONS (3)
  - Off label use [Unknown]
  - No adverse event [Unknown]
  - Device defective [Unknown]
